FAERS Safety Report 8363679-8 (Version None)
Quarter: 2012Q2

REPORT INFORMATION
  Report Type: 
  Country: None (occurrence: None)
  Receive Date: 20120516
  Receipt Date: 20120511
  Transmission Date: 20120825
  Serious: Yes (Death, Hospitalization)
  Sender: FDA-Public Use
  Company Number: US-SANOFI-AVENTIS-2012SA034158

PATIENT
  Age: 70 Year
  Sex: Male
  Weight: 118.7 kg

DRUGS (4)
  1. PREDNISONE [Suspect]
     Indication: PROSTATE CANCER
     Dosage: TOTAL DOSE : 230 MG
     Route: 048
     Dates: start: 20110207, end: 20120503
  2. LENALIDOMIDE [Suspect]
     Indication: PROSTATE CANCER
     Dosage: TOTAL DOSE ; 350 MG
     Route: 048
     Dates: start: 20110207
  3. DOCETAXEL [Suspect]
     Indication: PROSTATE CANCER
     Dosage: TOTAL DOSE: 173 MG OVER 60 MIN ON DAY 1
     Route: 042
     Dates: start: 20110207
  4. BEVACIZUMAB [Suspect]
     Indication: PROSTATE CANCER
     Dosage: TOTAL DOSE : 1590 MG
     Route: 042
     Dates: start: 20110207

REACTIONS (2)
  - SCROTAL INFECTION [None]
  - DEATH [None]
